FAERS Safety Report 17345960 (Version 1)
Quarter: 2020Q1

REPORT INFORMATION
  Report Type: Spontaneous
  Country: US (occurrence: US)
  Receive Date: 20200114
  Receipt Date: 20200114
  Transmission Date: 20200409
  Serious: Yes (Hospitalization)
  Sender: FDA-Public Use
  Company Number: None

PATIENT
  Age: 53 Year
  Sex: Female

DRUGS (1)
  1. OCALIVA [Suspect]
     Active Substance: OBETICHOLIC ACID
     Indication: PRIMARY BILIARY CHOLANGITIS
     Route: 048
     Dates: start: 20191216, end: 20200113

REACTIONS (5)
  - Hypersensitivity [None]
  - Insomnia [None]
  - Contusion [None]
  - Constipation [None]
  - Pruritus [None]

NARRATIVE: CASE EVENT DATE: 20191230
